FAERS Safety Report 6832094-8 (Version None)
Quarter: 2010Q3

REPORT INFORMATION
  Report Type: 
  Country: None (occurrence: None)
  Receive Date: 20100712
  Receipt Date: 20100706
  Transmission Date: 20110219
  Serious: Yes (Death, Hospitalization, Other)
  Sender: FDA-Public Use
  Company Number: DE-AMGEN-KDC422243

PATIENT
  Sex: Male
  Weight: 63 kg

DRUGS (16)
  1. CINACALCET HYDROCHLORIDE [Suspect]
     Indication: HYPERPARATHYROIDISM SECONDARY
     Dates: start: 20091007, end: 20100703
  2. ASPIRIN [Concomitant]
     Dates: end: 20100625
  3. PLAVIX [Concomitant]
     Dates: start: 20070607
  4. LEVOTHYROXINE SODIUM [Concomitant]
  5. RAMIPRIL [Concomitant]
  6. MOXONIDINE [Concomitant]
     Route: 048
  7. NEBIVOLOL [Concomitant]
  8. PANTOZOL [Concomitant]
  9. BONDIOL [Concomitant]
  10. CALCIUM ACETATE [Concomitant]
  11. DREISAVIT N [Concomitant]
  12. DEKRISTOL [Concomitant]
  13. EMLA [Concomitant]
  14. FERRLECIT [Concomitant]
     Route: 042
  15. ERYTHROPOIETIN HUMAN [Concomitant]
     Route: 042
  16. AMLODIPINE [Concomitant]

REACTIONS (3)
  - ACUTE PSYCHOSIS [None]
  - DEATH [None]
  - HERPES ZOSTER [None]
